FAERS Safety Report 10916297 (Version 4)
Quarter: 2016Q3

REPORT INFORMATION
  Report Type: Spontaneous
  Country: US (occurrence: US)
  Receive Date: 20150316
  Receipt Date: 20160802
  Transmission Date: 20161109
  Serious: Yes (Other)
  Sender: FDA-Public Use
  Company Number: US-BAYER-2015-035431

PATIENT
  Age: 54 Year
  Sex: Female
  Weight: 158.73 kg

DRUGS (7)
  1. LASIX [Concomitant]
     Active Substance: FUROSEMIDE
     Indication: HYPERTENSION
     Dosage: 20 MG, BID
  2. AMLODIPINE [Concomitant]
     Active Substance: AMLODIPINE BESYLATE
     Indication: HYPERTENSION
     Dosage: 10 MG, QD
  3. CRESTOR [Concomitant]
     Active Substance: ROSUVASTATIN CALCIUM
     Indication: HYPERTENSION
     Dosage: 40 MG, QD
     Dates: start: 2006
  4. WARFARIN [Concomitant]
     Active Substance: WARFARIN
     Indication: THROMBOSIS
     Dosage: 7.5 MG, QD
  5. INSULIN [Concomitant]
     Active Substance: INSULIN NOS
     Indication: DIABETES MELLITUS
     Dosage: UNK
     Dates: start: 2000
  6. AVELOX [Suspect]
     Active Substance: MOXIFLOXACIN HYDROCHLORIDE
     Indication: INFECTION
     Dosage: UNK
     Dates: start: 201102, end: 201103
  7. REVLIMID [Concomitant]
     Active Substance: LENALIDOMIDE
     Indication: PLASMA CELL MYELOMA
     Dosage: 10 MG, QD

REACTIONS (17)
  - Quality of life decreased [None]
  - Cardiovascular disorder [None]
  - Musculoskeletal injury [None]
  - Paraesthesia [None]
  - Fear [None]
  - Anxiety [None]
  - Economic problem [None]
  - Skin injury [None]
  - Neuropathy peripheral [None]
  - Product quality issue [None]
  - Injury [None]
  - Pain [None]
  - Mental disorder [None]
  - Burning sensation [None]
  - Hypoaesthesia [None]
  - Emotional distress [None]
  - Nervous system disorder [None]
